FAERS Safety Report 5492728-X (Version None)
Quarter: 2007Q4

REPORT INFORMATION
  Report Type: 
  Country: None (occurrence: None)
  Receive Date: 20071023
  Receipt Date: 20071015
  Transmission Date: 20080405
  Serious: Yes (Hospitalization)
  Sender: FDA-Public Use
  Company Number: FR-WYE-G00469507

PATIENT
  Sex: Female

DRUGS (7)
  1. ADVIL LIQUI-GELS [Suspect]
     Dosage: UNKNOWN
     Route: 048
     Dates: start: 20070801, end: 20070801
  2. HYDREA [Concomitant]
     Dosage: UNKNOWN
  3. SAVARINE [Concomitant]
     Dosage: UNKNOWN
     Dates: end: 20070814
  4. FLAGYL [Concomitant]
     Dosage: UNKNOWN
     Dates: start: 20070801
  5. NOROXIN [Concomitant]
     Dosage: UNKNOWN
     Dates: start: 20070801
  6. ORACILLINE [Concomitant]
     Dosage: UNKNOWN
  7. SPECIAFOLDINE [Concomitant]
     Dosage: UNKNOWN

REACTIONS (5)
  - ANURIA [None]
  - BLOOD SODIUM DECREASED [None]
  - CHEST DISCOMFORT [None]
  - HYPOVOLAEMIA [None]
  - RENAL FAILURE ACUTE [None]
